FAERS Safety Report 6305023-3 (Version None)
Quarter: 2009Q3

REPORT INFORMATION
  Report Type: 
  Country: None (occurrence: None)
  Receive Date: 20090811
  Receipt Date: 20090804
  Transmission Date: 20100115
  Serious: Yes (Other)
  Sender: FDA-Public Use
  Company Number: GB-GENENTECH-287561

PATIENT

DRUGS (4)
  1. MABTHERA [Suspect]
     Indication: KIDNEY TRANSPLANT REJECTION
     Dosage: 10 MG/KG, UNK
     Route: 065
  2. MYCOPHENOLATE MOFETIL [Suspect]
     Indication: KIDNEY TRANSPLANT REJECTION
     Dosage: 1 G, BID
     Route: 065
  3. TACROLIMUS [Suspect]
     Indication: KIDNEY TRANSPLANT REJECTION
     Route: 065
  4. METHYLPREDNISOLONE [Suspect]
     Indication: KIDNEY TRANSPLANT REJECTION
     Dosage: 10 MG/KG, UNK
     Route: 065

REACTIONS (1)
  - TRANSPLANT REJECTION [None]
